FAERS Safety Report 13108122 (Version 7)
Quarter: 2018Q4

REPORT INFORMATION
  Report Type: Spontaneous
  Country: US (occurrence: US)
  Receive Date: 20170112
  Receipt Date: 20181011
  Transmission Date: 20190204
  Serious: Yes (Hospitalization, Other)
  Sender: FDA-Public Use
  Company Number: US-PFIZER INC-2017010039

PATIENT
  Age: 42 Year
  Sex: Male
  Weight: 83.91 kg

DRUGS (9)
  1. WARFARIN [Concomitant]
     Active Substance: WARFARIN
     Dosage: 3 MG, (TEST ONCE TO TWICE A WEEK. IF IT IS TOO HIGH, HE WOULD USE A 3)
     Route: 048
  2. WARFARIN [Concomitant]
     Active Substance: WARFARIN
     Indication: THROMBOSIS
     Dosage: 4 MG, ALTERNATE DAY (4MG ONE DAY, 5MG THE NEXT IN ALTERNATING DOSES)
     Route: 048
     Dates: start: 2005
  3. REVATIO [Suspect]
     Active Substance: SILDENAFIL CITRATE
     Indication: PULMONARY HYPERTENSION
     Dosage: 20 MG, 3X/DAY
     Dates: start: 2003
  4. LOVENOX [Suspect]
     Active Substance: ENOXAPARIN SODIUM
     Dosage: 90 MG 1 SHOT EVERY 12 HOURS 5 DAYS PRIOR TO SURGERY AND 10 DAYS AFTER UNTIL WARFARIN THERAPY
  5. REVATIO [Suspect]
     Active Substance: SILDENAFIL CITRATE
     Dosage: 20 MG, 3X/DAY
     Dates: start: 2004
  6. REVATIO [Suspect]
     Active Substance: SILDENAFIL CITRATE
     Dosage: 40 MG (TWO 20 MG) , 3X/DAY
     Route: 048
     Dates: start: 2005
  7. WARFARIN [Concomitant]
     Active Substance: WARFARIN
     Dosage: 5 MG, ALTERNATE DAY (4MG ONE DAY, 5MG THE NEXT IN ALTERNATING DOSES )
     Route: 048
  8. LOVENOX [Suspect]
     Active Substance: ENOXAPARIN SODIUM
     Indication: SURGERY
     Dosage: 100 MG, UNK
  9. PREDNISONE. [Concomitant]
     Active Substance: PREDNISONE
     Dosage: UNK
     Dates: start: 2006

REACTIONS (12)
  - Hiccups [Recovered/Resolved]
  - Product use issue [Unknown]
  - Dyspnoea [Unknown]
  - Epistaxis [Recovered/Resolved]
  - Influenza [Not Recovered/Not Resolved]
  - Nephrolithiasis [Unknown]
  - Pulse absent [Unknown]
  - Weight decreased [Unknown]
  - Feeling abnormal [Unknown]
  - Pulmonary thrombosis [Recovered/Resolved with Sequelae]
  - Malaise [Unknown]
  - Blood pressure increased [Unknown]

NARRATIVE: CASE EVENT DATE: 2005
